FAERS Safety Report 5109547-6 (Version None)
Quarter: 2006Q3

REPORT INFORMATION
  Report Type: 
  Country: None (occurrence: None)
  Receive Date: 20060731
  Receipt Date: 20060404
  Transmission Date: 20061208
  Serious: No
  Sender: FDA-Public Use
  Company Number: 2006PV011542

PATIENT
  Age: 61 Year
  Sex: Female
  Weight: 92.9874 kg

DRUGS (8)
  1. BYETTA [Suspect]
     Indication: DIABETES MELLITUS NON-INSULIN-DEPENDENT
     Dosage: 5 MCG BID SC
     Route: 058
     Dates: start: 20060329
  2. LANTUS [Concomitant]
  3. LANTUS [Concomitant]
  4. ACTOS [Concomitant]
  5. GLUCOPHAGE [Concomitant]
  6. HYDROCHLOROTHIAZIDE [Concomitant]
  7. ANTIDEPRESSANT MEDICATION [Concomitant]
  8. GLUCOTROL XL [Concomitant]

REACTIONS (5)
  - ANXIETY [None]
  - DECREASED APPETITE [None]
  - NERVOUSNESS [None]
  - SOMNOLENCE [None]
  - WEIGHT DECREASED [None]
